FAERS Safety Report 13491506 (Version 2)
Quarter: 2017Q2

REPORT INFORMATION
  Report Type: Spontaneous
  Country: DE (occurrence: DE)
  Receive Date: 20170427
  Receipt Date: 20170504
  Transmission Date: 20170830
  Serious: Yes (Death, Life-Threatening, Other)
  Sender: FDA-Public Use
  Company Number: DE-DRREDDYS-USA/GER/17/0089506

PATIENT
  Age: 72 Year
  Sex: Female

DRUGS (4)
  1. LORAZEPAM. [Concomitant]
     Active Substance: LORAZEPAM
     Indication: STATUS EPILEPTICUS
     Route: 042
  2. VALPROIC ACID. [Suspect]
     Active Substance: VALPROIC ACID
     Indication: STATUS EPILEPTICUS
     Dosage: 75 TO 110 MG/HOUR
     Route: 065
  3. LEVETIRACETAM. [Suspect]
     Active Substance: LEVETIRACETAM
     Indication: STATUS EPILEPTICUS
     Route: 065
  4. LEVODOPA [Concomitant]
     Active Substance: LEVODOPA
     Indication: PARKINSON^S DISEASE
     Route: 065

REACTIONS (13)
  - Pelvic fracture [Fatal]
  - Paresis [Unknown]
  - Intensive care unit acquired weakness [Unknown]
  - Cognitive disorder [Unknown]
  - Ammonia increased [Unknown]
  - Apraxia [Unknown]
  - Drug ineffective [Unknown]
  - Coma [Recovered/Resolved]
  - Dyskinesia [Unknown]
  - Subarachnoid haemorrhage [Unknown]
  - Akinesia [Unknown]
  - Somnolence [Unknown]
  - Fall [Unknown]

NARRATIVE: CASE EVENT DATE: 20150903
